FAERS Safety Report 17036216 (Version 5)
Quarter: 2021Q1

REPORT INFORMATION
  Report Type: Spontaneous
  Country: US (occurrence: US)
  Receive Date: 20191115
  Receipt Date: 20210325
  Transmission Date: 20210419
  Serious: Yes (Other)
  Sender: FDA-Public Use
  Company Number: US-SA-2019SA313792

PATIENT
  Age: 20 Year
  Sex: Female

DRUGS (1)
  1. DUPIXENT [Suspect]
     Active Substance: DUPILUMAB
     Indication: DERMATITIS ALLERGIC
     Dosage: 300 MG, QOW
     Route: 058
     Dates: start: 20190605

REACTIONS (9)
  - Inflammation [Unknown]
  - Erythema [Unknown]
  - Respiratory tract infection [Recovering/Resolving]
  - Headache [Unknown]
  - Drug ineffective [Unknown]
  - Periorbital swelling [Unknown]
  - Eczema [Unknown]
  - Ocular hyperaemia [Unknown]
  - Decreased immune responsiveness [Unknown]

NARRATIVE: CASE EVENT DATE: 2019
